FAERS Safety Report 10379949 (Version 3)
Quarter: 2014Q3

REPORT INFORMATION
  Report Type: Spontaneous
  Country: HU (occurrence: HU)
  Receive Date: 20140813
  Receipt Date: 20140821
  Transmission Date: 20150326
  Serious: Yes (Other)
  Sender: FDA-Public Use
  Company Number: HU-PFIZER INC-2014211503

PATIENT
  Age: 69 Year
  Sex: Female

DRUGS (4)
  1. CARDURA [Suspect]
     Active Substance: DOXAZOSIN MESYLATE
     Indication: HYPERTENSION
     Dosage: 4 MG, 2X/DAY
     Route: 048
  2. CARDURA [Suspect]
     Active Substance: DOXAZOSIN MESYLATE
     Dosage: 4 MG, 1X/DAY
     Route: 048
     Dates: end: 201408
  3. ATENOBENE [Concomitant]
     Indication: ARRHYTHMIA
     Dosage: 25 MG, 2X/DAY
  4. DIAPREL RETARD [Concomitant]
     Indication: TYPE 2 DIABETES MELLITUS
     Dosage: UNK, 1X/DAY

REACTIONS (4)
  - Cholelithiasis [Unknown]
  - Onychoclasis [Recovered/Resolved]
  - Alopecia [Recovered/Resolved]
  - Incontinence [Recovered/Resolved]

NARRATIVE: CASE EVENT DATE: 2011
